FAERS Safety Report 5422597-5 (Version None)
Quarter: 2007Q3

REPORT INFORMATION
  Report Type: 
  Country: None (occurrence: None)
  Receive Date: 20070822
  Receipt Date: 20070808
  Transmission Date: 20080115
  Serious: Yes (Hospitalization, Other)
  Sender: FDA-Public Use
  Company Number: US-ELI_LILLY_AND_COMPANY-USA0510111857

PATIENT
  Age: 66 Year
  Sex: Female
  Weight: 48.526 kg

DRUGS (14)
  1. FORTEO [Suspect]
     Dosage: 20 UG, EACH EVENING
     Dates: start: 20051001
  2. FORTEO [Suspect]
     Dosage: 20 UG, EACH EVENING
     Route: 058
     Dates: start: 20050903, end: 20051001
  3. SYNTHROID [Concomitant]
     Dosage: 0.025 MG, DAILY (1/D)
  4. FOSAMAX [Concomitant]
     Dosage: 70 MG, WEEKLY (1/W)
  5. VERAPAMIL [Concomitant]
     Dosage: 180 MG, 2/D
  6. CYCLOSPORINE [Concomitant]
     Dosage: 0.05 %, 2/D ONE DROP IN EACH EYE
     Route: 047
  7. FLONASE [Concomitant]
     Dosage: 50 UG, DAILY (1/D)
  8. FOLIC ACID [Concomitant]
     Dosage: 1 MG, DAILY (1/D)
  9. OMEPRAZOLE [Concomitant]
     Indication: GASTROOESOPHAGEAL REFLUX DISEASE
     Dosage: 20 MG, 2/D
  10. LISINOPRIL [Concomitant]
     Dosage: 10 MG, 2/D
  11. MAGNESIUM SULFATE [Concomitant]
     Dosage: 250 MG, 2/D
  12. VITAMIN B-12 [Concomitant]
     Dosage: 1000 UG, MONTHLY (1/M)
     Route: 030
  13. VICODIN [Concomitant]
     Dosage: UNK, AS NEEDED
  14. LOVENOX [Concomitant]
     Dosage: 40 MG, EACH EVENING
     Route: 058

REACTIONS (9)
  - BLOOD PRESSURE DECREASED [None]
  - BLOOD THYROID STIMULATING HORMONE DECREASED [None]
  - CHEST PAIN [None]
  - CORONARY ARTERY OCCLUSION [None]
  - DEPRESSION [None]
  - FIBRIN D DIMER INCREASED [None]
  - KIDNEY INFECTION [None]
  - MYOCARDIAL INFARCTION [None]
  - RENAL FAILURE CHRONIC [None]
